FAERS Safety Report 22969040 (Version 2)
Quarter: 2023Q4

REPORT INFORMATION
  Report Type: Spontaneous
  Country: None (occurrence: IE)
  Receive Date: 20230922
  Receipt Date: 20231003
  Transmission Date: 20240109
  Serious: Yes (Hospitalization, Other)
  Sender: FDA-Public Use
  Company Number: IE-Oxford Pharmaceuticals, LLC-2146252

PATIENT
  Age: 27 Year
  Sex: Male

DRUGS (1)
  1. ALPRAZOLAM [Suspect]
     Active Substance: ALPRAZOLAM
     Indication: Product used for unknown indication

REACTIONS (22)
  - Delirium [Recovered/Resolved]
  - Psychotic disorder [Recovered/Resolved]
  - Drug withdrawal syndrome [Unknown]
  - Toxicity to various agents [Unknown]
  - Substance dependence [Unknown]
  - Psychomotor hyperactivity [Recovered/Resolved]
  - Insomnia [Recovered/Resolved]
  - Irritability [Recovered/Resolved]
  - Pruritus [Recovered/Resolved]
  - Paraesthesia [Recovered/Resolved]
  - Hallucination [Recovered/Resolved]
  - Disorganised speech [Recovered/Resolved]
  - Restlessness [Recovered/Resolved]
  - Illusion [Recovered/Resolved]
  - Paranoia [Recovered/Resolved]
  - Persecutory delusion [Recovered/Resolved]
  - Disorientation [Recovered/Resolved]
  - Intentional self-injury [Recovered/Resolved]
  - Foot fracture [Recovered/Resolved]
  - Psychomotor hyperactivity [Recovered/Resolved]
  - Illogical thinking [Recovered/Resolved]
  - Hyperarousal [Recovered/Resolved]
